FAERS Safety Report 5632088-4 (Version None)
Quarter: 2008Q1

REPORT INFORMATION
  Report Type: 
  Country: None (occurrence: None)
  Receive Date: 20080220
  Receipt Date: 20080214
  Transmission Date: 20080703
  Serious: Yes (Other)
  Sender: FDA-Public Use
  Company Number: B0504861A

PATIENT
  Age: 9 Year
  Sex: Male
  Weight: 38 kg

DRUGS (2)
  1. RELENZA [Suspect]
     Indication: INFLUENZA
     Dosage: 10MG TWICE PER DAY
     Route: 055
     Dates: start: 20080128, end: 20080128
  2. CALONAL [Suspect]
     Dosage: 200MG THREE TIMES PER DAY
     Route: 048
     Dates: start: 20071228

REACTIONS (3)
  - ABNORMAL BEHAVIOUR [None]
  - NIGHTMARE [None]
  - PYREXIA [None]
